FAERS Safety Report 24444048 (Version 2)
Quarter: 2024Q4

REPORT INFORMATION
  Report Type: Report from Study
  Country: CA (occurrence: CA)
  Receive Date: 20241016
  Receipt Date: 20241017
  Transmission Date: 20250115
  Serious: No
  Sender: ROCHE
  Company Number: CA-ROCHE-2632487

PATIENT
  Age: 52 Year
  Sex: Female
  Weight: 112.7 kg

DRUGS (12)
  1. RITUXAN [Suspect]
     Active Substance: RITUXIMAB
     Indication: Rheumatoid arthritis
     Dosage: DAY 1, DAY 15
     Route: 042
     Dates: start: 20200609, end: 20200625
  2. RITUXAN [Suspect]
     Active Substance: RITUXIMAB
     Dosage: DAY 1, DAY 15
     Route: 042
     Dates: start: 20201210, end: 20230727
  3. RITUXAN [Suspect]
     Active Substance: RITUXIMAB
     Route: 042
  4. ARAVA [Concomitant]
     Active Substance: LEFLUNOMIDE
  5. METHOTREXATE [Concomitant]
     Active Substance: METHOTREXATE
  6. ADVIL [Concomitant]
     Active Substance: IBUPROFEN
     Indication: Product used for unknown indication
  7. BENADRYL [Concomitant]
     Active Substance: DIPHENHYDRAMINE HYDROCHLORIDE
     Indication: Premedication
     Route: 048
     Dates: start: 20200609
  8. PREDNISONE [Concomitant]
     Active Substance: PREDNISONE
     Indication: Product used for unknown indication
  9. SOLU-MEDROL [Concomitant]
     Active Substance: METHYLPREDNISOLONE SODIUM SUCCINATE
     Indication: Premedication
     Route: 042
     Dates: start: 20200609
  10. TYLENOL [Concomitant]
     Active Substance: ACETAMINOPHEN
     Indication: Premedication
     Route: 048
     Dates: start: 20200609
  11. ZANTAC [Concomitant]
     Active Substance: RANITIDINE HYDROCHLORIDE
     Indication: Gastrooesophageal reflux disease
  12. PLAQUENIL [Concomitant]
     Active Substance: HYDROXYCHLOROQUINE SULFATE
     Indication: Product used for unknown indication

REACTIONS (5)
  - Blood pressure diastolic increased [Unknown]
  - Blood pressure diastolic abnormal [Unknown]
  - Blood pressure systolic increased [Unknown]
  - Off label use [Unknown]
  - Blood pressure systolic abnormal [Unknown]

NARRATIVE: CASE EVENT DATE: 20200625
